FAERS Safety Report 23775640 (Version 4)
Quarter: 2024Q4

REPORT INFORMATION
  Report Type: Report from Study
  Country: CO (occurrence: CO)
  Receive Date: 20240423
  Receipt Date: 20241107
  Transmission Date: 20250114
  Serious: Yes (Hospitalization, Other)
  Sender: NOVARTIS
  Company Number: CO-002147023-NVSC2024CO083990

PATIENT
  Age: 57 Year
  Sex: Female
  Weight: 46 kg

DRUGS (7)
  1. KISQALI [Suspect]
     Active Substance: RIBOCICLIB
     Indication: Hormone receptor positive HER2 negative breast cancer
     Dosage: 600 MG, QD
     Route: 048
     Dates: start: 20231102, end: 20240912
  2. FEMARA [Suspect]
     Active Substance: LETROZOLE
     Indication: Hormone receptor positive HER2 negative breast cancer
     Dosage: 1 DOSAGE FORM (1 OF 25 MG)
     Route: 048
     Dates: start: 202311
  3. FEMARA [Suspect]
     Active Substance: LETROZOLE
     Dosage: 2.5 MG, QD
     Route: 048
     Dates: start: 20231102, end: 20240912
  4. ACETAMINOPHEN [Concomitant]
     Active Substance: ACETAMINOPHEN
     Indication: Product used for unknown indication
     Dosage: UNK, Q8H
     Route: 048
     Dates: start: 202312
  5. MINERALS\VITAMINS [Concomitant]
     Active Substance: MINERALS\VITAMINS
     Indication: Product used for unknown indication
     Dosage: UNK, Q24H (ONE YEAR AGO)
     Route: 048
  6. MORPHINE HYDROCHLORIDE [Concomitant]
     Active Substance: MORPHINE HYDROCHLORIDE
     Indication: Product used for unknown indication
     Dosage: 10 DOSAGE FORM, Q4H
     Route: 048
  7. PREGABALIN [Concomitant]
     Active Substance: PREGABALIN
     Indication: Product used for unknown indication
     Dosage: 75 MG, Q12H (EVERY 12 HOURS/ IN THE MORNING AND AT NIGHT)
     Route: 048
     Dates: start: 202312

REACTIONS (38)
  - Metastases to spine [Unknown]
  - Mobility decreased [Unknown]
  - Pain [Recovered/Resolved]
  - Platelet count decreased [Not Recovered/Not Resolved]
  - Chest pain [Recovered/Resolved]
  - Movement disorder [Recovered/Resolved]
  - Productive cough [Not Recovered/Not Resolved]
  - Musculoskeletal pain [Recovered/Resolved]
  - Pneumonia [Recovered/Resolved]
  - Haemoglobin decreased [Not Recovered/Not Resolved]
  - Hormone receptor positive HER2 negative breast cancer [Not Recovered/Not Resolved]
  - Malignant neoplasm progression [Not Recovered/Not Resolved]
  - Dyspnoea [Not Recovered/Not Resolved]
  - Hypoaesthesia [Recovering/Resolving]
  - Respiratory disorder [Unknown]
  - Throat lesion [Unknown]
  - Dry mouth [Not Recovered/Not Resolved]
  - Hepatic lesion [Unknown]
  - Liver injury [Unknown]
  - Cachexia [Unknown]
  - Hepatic mass [Not Recovered/Not Resolved]
  - Chest pain [Unknown]
  - Pelvic pain [Not Recovered/Not Resolved]
  - Movement disorder [Not Recovered/Not Resolved]
  - Pain in extremity [Recovering/Resolving]
  - Discomfort [Unknown]
  - Arthralgia [Unknown]
  - Full blood count abnormal [Unknown]
  - Platelet count abnormal [Unknown]
  - Bone disorder [Not Recovered/Not Resolved]
  - Thyroid mass [Not Recovered/Not Resolved]
  - Depressed mood [Not Recovered/Not Resolved]
  - Thirst [Not Recovered/Not Resolved]
  - Hypotension [Not Recovered/Not Resolved]
  - Fatigue [Not Recovered/Not Resolved]
  - Chest discomfort [Unknown]
  - Lung disorder [Unknown]
  - Drug intolerance [Unknown]

NARRATIVE: CASE EVENT DATE: 20240501
